FAERS Safety Report 9656460 (Version 1)
Quarter: 2013Q4

REPORT INFORMATION
  Report Type: Spontaneous
  Country: US (occurrence: US)
  Receive Date: 20131030
  Receipt Date: 20131030
  Transmission Date: 20140711
  Serious: Yes (Death, Other)
  Sender: FDA-Public Use
  Company Number: US-ELI_LILLY_AND_COMPANY-US201310007848

PATIENT
  Age: 70 Year
  Sex: Male

DRUGS (3)
  1. INSULIN HUMAN [Suspect]
     Indication: DIABETES MELLITUS
     Dosage: 50 U, SINGLE
     Route: 065
  2. NOVOLOG [Suspect]
     Indication: PRODUCT USED FOR UNKNOWN INDICATION
     Dosage: 1 DF, SINGLE
     Route: 065
  3. NOVOLOG [Suspect]
     Indication: PRODUCT USED FOR UNKNOWN INDICATION
     Dosage: 2000 U, SINGLE
     Route: 065

REACTIONS (3)
  - Completed suicide [Fatal]
  - Suicide attempt [Unknown]
  - Blood glucose increased [Unknown]
